FAERS Safety Report 7929827-6 (Version None)
Quarter: 2011Q4

REPORT INFORMATION
  Report Type: 
  Country: None (occurrence: None)
  Receive Date: 20111121
  Receipt Date: 20111114
  Transmission Date: 20120403
  Serious: Yes (Other)
  Sender: FDA-Public Use
  Company Number: PHHY2011JP82281

PATIENT
  Sex: Male
  Weight: 45 kg

DRUGS (4)
  1. ZOMETA [Suspect]
     Indication: METASTASES TO BONE
     Dosage: 4 MG
     Dates: start: 20100428
  2. DOCETAXEL [Concomitant]
     Indication: PROSTATE CANCER
     Dosage: UNK UKN, UNK
     Dates: start: 20100225, end: 20110728
  3. ZOMETA [Suspect]
     Dosage: 3 MG, UNK
     Dates: end: 20110616
  4. DECADRON [Concomitant]
     Dosage: 1.0 MG, UNK
     Dates: start: 20100210

REACTIONS (6)
  - ORAL PAIN [None]
  - OSTEONECROSIS OF JAW [None]
  - ERYTHEMA [None]
  - ORAL DISORDER [None]
  - SWELLING [None]
  - TOOTHACHE [None]
